FAERS Safety Report 13721965 (Version 3)
Quarter: 2017Q3

REPORT INFORMATION
  Report Type: Spontaneous
  Country: US (occurrence: US)
  Receive Date: 20170706
  Receipt Date: 20170727
  Transmission Date: 20171127
  Serious: No
  Sender: FDA-Public Use
  Company Number: US-PFIZER INC-2017282046

PATIENT
  Age: 92 Year
  Sex: Female
  Weight: 68 kg

DRUGS (2)
  1. NORVASC [Suspect]
     Active Substance: AMLODIPINE BESYLATE
     Dosage: 10 MG, UNK [DOCTOR TOLD HER TO CUT THE PILLS IN HALF, AND THE 5MG WORKS WONDERFULLY FOR HER]
  2. NORVASC [Suspect]
     Active Substance: AMLODIPINE BESYLATE
     Dosage: 10 MG, UNK

REACTIONS (2)
  - Pain [Not Recovered/Not Resolved]
  - Blood pressure decreased [Unknown]
